FAERS Safety Report 9808114 (Version 1)
Quarter: 2014Q1

REPORT INFORMATION
  Report Type: Spontaneous
  Country: CH (occurrence: CH)
  Receive Date: 20140110
  Receipt Date: 20140110
  Transmission Date: 20141002
  Serious: Yes (Hospitalization, Other)
  Sender: FDA-Public Use
  Company Number: CH-009507513-1401CHE003718

PATIENT
  Age: 43 Year
  Sex: Male

DRUGS (4)
  1. REMERON SOLTAB [Suspect]
     Dosage: 90 MG, QD (6 DF AT ONCE)
     Route: 048
     Dates: start: 20130819, end: 20130819
  2. ALPRAZOLAM [Suspect]
     Dosage: 10 MG, QD (20 DF AT ONCE)
     Route: 048
     Dates: start: 20130819, end: 20130819
  3. ACETAMINOPHEN [Suspect]
     Dosage: 10 G, QD
     Route: 048
     Dates: start: 20130819, end: 20130819
  4. DIPYRONE [Suspect]
     Dosage: 10 DF, ONCE
     Route: 048
     Dates: start: 20130819, end: 20130819

REACTIONS (3)
  - Suicide attempt [Recovered/Resolved]
  - Sopor [Recovered/Resolved]
  - Agitation [Recovered/Resolved]
